FAERS Safety Report 6112490-7 (Version None)
Quarter: 2009Q1

REPORT INFORMATION
  Report Type: 
  Country: None (occurrence: None)
  Receive Date: 20090312
  Receipt Date: 20090310
  Transmission Date: 20090719
  Serious: Yes (Hospitalization)
  Sender: FDA-Public Use
  Company Number: US-JNJFOC-20090302678

PATIENT
  Sex: Female

DRUGS (2)
  1. ARESTIN [Suspect]
     Indication: DRUG USE FOR UNKNOWN INDICATION
     Route: 065
  2. UNKNOWN MEDICATIONS [Concomitant]
     Route: 065

REACTIONS (4)
  - CYANOSIS [None]
  - DYSPNOEA [None]
  - NAIL DISCOLOURATION [None]
  - PALLOR [None]
